FAERS Safety Report 8603655 (Version 3)
Quarter: 2012Q4

REPORT INFORMATION
  Report Type: 
  Country: DE (occurrence: DE)
  Receive Date: 20120607
  Receipt Date: 20120831
  Transmission Date: 20130627
  Serious: Yes (Life-Threatening, Hospitalization)
  Sender: FDA-Public Use
  Company Number: DE-TEVA-341438USA

PATIENT
  Age: 83 Year
  Sex: Female
  Weight: 54 kg

DRUGS (2)
  1. TREANDA [Suspect]
     Indication: PROLYMPHOCYTIC LEUKAEMIA
     Dosage: unknown/ 6 cycles
     Route: 042
  2. RITUXIMAB [Suspect]
     Indication: PROLYMPHOCYTIC LEUKAEMIA
     Dosage: unknown/ 6 cycles

REACTIONS (2)
  - Hepatitis B [Recovered/Resolved]
  - Hepatic failure [Recovered/Resolved]
